FAERS Safety Report 24201934 (Version 6)
Quarter: 2024Q4

REPORT INFORMATION
  Report Type: Report from Study
  Country: JP (occurrence: JP)
  Receive Date: 20240812
  Receipt Date: 20241017
  Transmission Date: 20250114
  Serious: Yes (Hospitalization)
  Sender: PFIZER
  Company Number: JP-PFIZER INC-PV202400103810

PATIENT
  Age: 8 Year
  Sex: Female
  Weight: 20.2 kg

DRUGS (14)
  1. SIROLIMUS [Suspect]
     Active Substance: SIROLIMUS
     Indication: Lymphatic malformation
     Dosage: 1 MG,1 D
     Route: 048
     Dates: start: 20220112, end: 20220208
  2. SIROLIMUS [Suspect]
     Active Substance: SIROLIMUS
     Dosage: 1.5 MG,1 D
     Route: 048
     Dates: start: 20220209, end: 20220309
  3. SIROLIMUS [Suspect]
     Active Substance: SIROLIMUS
     Dosage: 2 MG,1 D
     Route: 048
     Dates: start: 20220310, end: 20220422
  4. SIROLIMUS [Suspect]
     Active Substance: SIROLIMUS
     Dosage: 2.5 MG,1 D
     Route: 048
     Dates: start: 20220423, end: 20220430
  5. SIROLIMUS [Suspect]
     Active Substance: SIROLIMUS
     Dosage: 3 MG,1 D
     Route: 048
     Dates: start: 20220501, end: 20230427
  6. AMOXICILLIN [Concomitant]
     Active Substance: AMOXICILLIN
     Indication: Eye discharge
     Dosage: UNK
     Route: 048
     Dates: start: 20230621, end: 20230626
  7. HERBALS [Concomitant]
     Active Substance: HERBALS
     Indication: Lymphatic malformation
     Dosage: UNK
     Route: 048
  8. INDERAL [Concomitant]
     Active Substance: PROPRANOLOL HYDROCHLORIDE
     Indication: Lymphangioma
     Dosage: UNK
     Route: 048
  9. PRANLUKAST [Concomitant]
     Active Substance: PRANLUKAST
     Dosage: UNK
     Route: 048
  10. ALLELOCK [Concomitant]
     Active Substance: OLOPATADINE HYDROCHLORIDE
     Dosage: UNK
     Route: 048
  11. SULFAMETHOXAZOLE\TRIMETHOPRIM [Concomitant]
     Active Substance: SULFAMETHOXAZOLE\TRIMETHOPRIM
     Indication: Prophylaxis
     Dosage: UNK
     Route: 048
  12. ASVERIN (RIBAVIRIN) [Concomitant]
     Active Substance: RIBAVIRIN
     Dosage: UNK
     Route: 048
  13. CARBOCYSTEINE [Concomitant]
     Active Substance: CARBOCYSTEINE
     Dosage: UNK
     Route: 048
  14. MUCOSAL [ACETYLCYSTEINE] [Concomitant]
     Dosage: UNK
     Route: 048

REACTIONS (6)
  - Pneumonia [Recovering/Resolving]
  - Infected neoplasm [Recovering/Resolving]
  - Bronchitis [Recovering/Resolving]
  - Infected neoplasm [Recovering/Resolving]
  - Infected neoplasm [Recovering/Resolving]
  - Eye infection [Unknown]

NARRATIVE: CASE EVENT DATE: 20230315
